FAERS Safety Report 22896470 (Version 3)
Quarter: 2023Q4

REPORT INFORMATION
  Report Type: Spontaneous
  Country: CN (occurrence: CN)
  Receive Date: 20230901
  Receipt Date: 20231003
  Transmission Date: 20240110
  Serious: Yes (Hospitalization)
  Sender: FDA-Public Use
  Company Number: CN-PFIZER INC-PV202300147753

PATIENT
  Age: 4 Year
  Sex: Male
  Weight: 17 kg

DRUGS (5)
  1. METHOTREXATE SODIUM [Suspect]
     Active Substance: METHOTREXATE SODIUM
     Indication: Burkitt^s lymphoma
     Dosage: 3475 MG, 1X/DAY
     Route: 041
     Dates: start: 20230729, end: 20230729
  2. CYTARABINE [Suspect]
     Active Substance: CYTARABINE
     Indication: Burkitt^s lymphoma
     Dosage: 100 MG, 2X/DAY
     Route: 041
     Dates: start: 20230801, end: 20230802
  3. ETOPOSIDE [Suspect]
     Active Substance: ETOPOSIDE
     Indication: Burkitt^s lymphoma
     Dosage: 0.07 G, 2X/DAY
     Route: 041
     Dates: start: 20230801, end: 20230802
  4. IFOSFAMIDE [Suspect]
     Active Substance: IFOSFAMIDE
     Indication: Burkitt^s lymphoma
     Dosage: 0.556 G, 1X/DAY
     Route: 041
     Dates: start: 20230729, end: 20230802
  5. VINCRISTINE SULFATE [Suspect]
     Active Substance: VINCRISTINE SULFATE
     Indication: Burkitt^s lymphoma
     Dosage: 1.042 MG, 1X/DAY
     Route: 041
     Dates: start: 20230729, end: 20230729

REACTIONS (4)
  - Myelosuppression [Recovering/Resolving]
  - Infection [Recovering/Resolving]
  - Mouth ulceration [Unknown]
  - Cough [Unknown]

NARRATIVE: CASE EVENT DATE: 20230803
